FAERS Safety Report 7820916-3 (Version None)
Quarter: 2011Q4

REPORT INFORMATION
  Report Type: 
  Country: None (occurrence: None)
  Receive Date: 20111018
  Receipt Date: 20111011
  Transmission Date: 20120403
  Serious: Yes (Other)
  Sender: FDA-Public Use
  Company Number: BR-GLAXOSMITHKLINE-A0949357A

PATIENT
  Sex: Female
  Weight: 52 kg

DRUGS (1)
  1. FLUTICASONE PROPIONATE/SALMETEROL [Suspect]
     Indication: ASTHMA
     Dosage: 1PUFF PER DAY
     Route: 055
     Dates: start: 20100101

REACTIONS (3)
  - ASTHMATIC CRISIS [None]
  - DRUG ADMINISTRATION ERROR [None]
  - DYSPNOEA [None]
